FAERS Safety Report 5724691-8 (Version None)
Quarter: 2008Q2

REPORT INFORMATION
  Report Type: 
  Country: None (occurrence: None)
  Receive Date: 20080501
  Receipt Date: 20080423
  Transmission Date: 20081010
  Serious: Yes (Other)
  Sender: FDA-Public Use
  Company Number: AU-TEVA-170769ISR

PATIENT
  Age: 75 Year
  Sex: Male

DRUGS (2)
  1. METHOTREXATE [Suspect]
     Indication: MYASTHENIA GRAVIS
  2. METHOTREXATE [Suspect]

REACTIONS (1)
  - MANTLE CELL LYMPHOMA [None]
